FAERS Safety Report 23743357 (Version 1)
Quarter: 2024Q2

REPORT INFORMATION
  Report Type: Report from Study
  Country: US (occurrence: None)
  Receive Date: 20240415
  Receipt Date: 20240415
  Transmission Date: 20240716
  Serious: Yes (Death, Other)
  Sender: FDA-Public Use
  Company Number: 2020SE99919

PATIENT
  Age: 31020 Day
  Sex: Male

DRUGS (2)
  1. DALIRESP [Suspect]
     Active Substance: ROFLUMILAST
     Indication: Emphysema
     Route: 048
     Dates: start: 201809, end: 2020
  2. DALIRESP [Suspect]
     Active Substance: ROFLUMILAST
     Indication: Lung disorder
     Route: 048
     Dates: start: 201809, end: 2020

REACTIONS (3)
  - Oesophageal carcinoma [Unknown]
  - Death [Fatal]
  - Total lung capacity decreased [Unknown]

NARRATIVE: CASE EVENT DATE: 20200804
